FAERS Safety Report 6375334-4 (Version None)
Quarter: 2009Q3

REPORT INFORMATION
  Report Type: 
  Country: None (occurrence: None)
  Receive Date: 20090924
  Receipt Date: 20090916
  Transmission Date: 20100115
  Serious: Yes (Death)
  Sender: FDA-Public Use
  Company Number: B0594657A

PATIENT

DRUGS (6)
  1. ZIDOVUDINE [Suspect]
     Indication: PROPHYLAXIS AGAINST HIV INFECTION
     Dosage: 2MGK FOUR TIMES PER DAY
     Route: 048
  2. NEVIRAPINE [Suspect]
     Indication: PROPHYLAXIS AGAINST HIV INFECTION
     Route: 048
  3. ZIDOVUDINE [Suspect]
     Dosage: 500MG PER DAY
  4. NEVIRAPINE [Suspect]
  5. LAMIVUDINE [Suspect]
     Indication: PROPHYLAXIS AGAINST HIV INFECTION
     Dosage: 120MG TWICE PER DAY
  6. ANTIVIRAL [Suspect]
     Indication: PROPHYLAXIS AGAINST HIV INFECTION

REACTIONS (2)
  - DEATH [None]
  - DRUG EXPOSURE DURING PREGNANCY [None]
